FAERS Safety Report 9972282 (Version 1)
Quarter: 2014Q1

REPORT INFORMATION
  Report Type: Spontaneous
  Country: US (occurrence: None)
  Receive Date: 20140305
  Receipt Date: 20140305
  Transmission Date: 20141002
  Serious: No
  Sender: FDA-Public Use
  Company Number: None

PATIENT
  Age: 60 Year
  Sex: Male
  Weight: 68.2 kg

DRUGS (1)
  1. DOCETAXEL [Suspect]
     Indication: PROSTATE CANCER
     Dosage: 133 ONCE
     Route: 042
     Dates: start: 20140227, end: 20140227

REACTIONS (2)
  - Infusion site extravasation [None]
  - Hypoaesthesia [None]
